FAERS Safety Report 20990078 (Version 3)
Quarter: 2023Q2

REPORT INFORMATION
  Report Type: Spontaneous
  Country: US (occurrence: US)
  Receive Date: 20220621
  Receipt Date: 20230618
  Transmission Date: 20230721
  Serious: Yes (Other)
  Sender: FDA-Public Use
  Company Number: US-JNJFOC-20220627113

PATIENT
  Age: 52 Year
  Sex: Female

DRUGS (23)
  1. ELMIRON [Suspect]
     Active Substance: PENTOSAN POLYSULFATE SODIUM
     Indication: Cystitis interstitial
     Route: 048
     Dates: start: 200201, end: 20220228
  2. VENTOLIN HFA [Concomitant]
     Active Substance: ALBUTEROL SULFATE
     Indication: Bronchial hyperreactivity
     Dates: start: 1992
  3. ALBUTEROL [Concomitant]
     Active Substance: ALBUTEROL
     Indication: Bronchial hyperreactivity
     Dates: start: 1992
  4. ASACOL HD [Concomitant]
     Active Substance: MESALAMINE
     Indication: Colitis ulcerative
     Dates: start: 2011, end: 2021
  5. FIORICET [Concomitant]
     Active Substance: ACETAMINOPHEN\BUTALBITAL\CAFFEINE
     Indication: Headache
     Dates: start: 2017
  6. CLARINEX-D 24 HOUR [Concomitant]
     Active Substance: DESLORATADINE\PSEUDOEPHEDRINE SULFATE
     Indication: Nasal decongestion therapy
     Dates: start: 2011, end: 2021
  7. CROMOLYN [Concomitant]
     Active Substance: CROMOLYN
     Indication: Seasonal allergy
     Dates: start: 2019, end: 2020
  8. CYCLOBENZAPRINE [Concomitant]
     Active Substance: CYCLOBENZAPRINE
     Indication: Multiple sclerosis
     Dates: start: 2017
  9. DIAZEPAM [Concomitant]
     Active Substance: DIAZEPAM
     Indication: Multiple sclerosis
     Dates: start: 2005
  10. FLUCONAZOLE [Concomitant]
     Active Substance: FLUCONAZOLE
     Indication: Fungal infection
     Dates: start: 2013, end: 2021
  11. METRONIDAZOLE [Concomitant]
     Active Substance: METRONIDAZOLE
     Indication: Vulvovaginal mycotic infection
     Dates: start: 2015, end: 2020
  12. ACETAMINOPHEN\HYDROCODONE [Concomitant]
     Active Substance: ACETAMINOPHEN\HYDROCODONE
     Indication: Multiple sclerosis
     Dates: start: 2018
  13. POTASSIUM CHLORIDE [Concomitant]
     Active Substance: POTASSIUM CHLORIDE
     Indication: Blood potassium decreased
     Dates: start: 2011
  14. LEVOFLOXACIN [Concomitant]
     Active Substance: LEVOFLOXACIN
     Indication: Sinusitis
     Dates: start: 2019
  15. LYRICA [Concomitant]
     Active Substance: PREGABALIN
     Indication: Multiple sclerosis
     Dates: start: 2006
  16. MERCAPTOPURINE [Concomitant]
     Active Substance: MERCAPTOPURINE
     Indication: Colitis ulcerative
     Dates: start: 2012
  17. OFLOXACIN [Concomitant]
     Active Substance: OFLOXACIN
     Indication: Ear infection
     Dates: start: 2011
  18. PREDNISONE [Concomitant]
     Active Substance: PREDNISONE
     Indication: Multiple allergies
     Dates: start: 2012, end: 2020
  19. PREDNISONE [Concomitant]
     Active Substance: PREDNISONE
     Indication: Colitis ulcerative
  20. PROVIGIL [Concomitant]
     Active Substance: MODAFINIL
     Indication: Multiple sclerosis
     Dates: start: 2011
  21. SINGULAIR [Concomitant]
     Active Substance: MONTELUKAST SODIUM
     Indication: Seasonal allergy
     Dates: start: 1992
  22. MESALAMINE [Concomitant]
     Active Substance: MESALAMINE
     Indication: Colitis ulcerative
     Dates: start: 2015
  23. UBRELVY [Concomitant]
     Active Substance: UBROGEPANT
     Indication: Headache
     Dates: start: 2021

REACTIONS (2)
  - Dry age-related macular degeneration [Not Recovered/Not Resolved]
  - Pigmentary maculopathy [Unknown]

NARRATIVE: CASE EVENT DATE: 20201109
